FAERS Safety Report 26185020 (Version 2)
Quarter: 2025Q4

REPORT INFORMATION
  Report Type: Spontaneous
  Country: US (occurrence: US)
  Receive Date: 20251222
  Receipt Date: 20251226
  Transmission Date: 20260118
  Serious: Yes (Death)
  Sender: MERCK KGAA
  Company Number: US-Merck Healthcare KGaA-2025065519

PATIENT
  Age: 78 Year
  Sex: Male

DRUGS (1)
  1. REBIF [Suspect]
     Active Substance: INTERFERON BETA-1A
     Indication: Multiple sclerosis
     Dates: start: 201901

REACTIONS (1)
  - Death [Fatal]

NARRATIVE: CASE EVENT DATE: 20251208
